FAERS Safety Report 5228043-9 (Version None)
Quarter: 2007Q1

REPORT INFORMATION
  Report Type: 
  Country: None (occurrence: None)
  Receive Date: 20061201
  Receipt Date: 20060222
  Transmission Date: 20070707
  Serious: No
  Sender: FDA-Public Use
  Company Number: 2006UW01863

PATIENT
  Age: 72 Year
  Sex: Male
  Weight: 62.5964 kg

DRUGS (14)
  1. MERREM [Suspect]
     Indication: RESPIRATORY TRACT INFECTION
     Dosage: 1 G Q12H IV
     Route: 042
     Dates: start: 20051225, end: 20060102
  2. AMIODARONE HCL [Concomitant]
  3. LIPITOR [Concomitant]
  4. DIGOXIN [Concomitant]
  5. RANITIDINE [Concomitant]
  6. FUROSEMIDE [Concomitant]
  7. ALLEGRA [Concomitant]
  8. LORAZEPAM [Concomitant]
  9. FLOMAX [Concomitant]
  10. AMBIEN [Concomitant]
  11. MUCINEX [Concomitant]
  12. AZMACORT [Concomitant]
  13. RHINOCORT [Concomitant]
  14. XOPENEX [Concomitant]

REACTIONS (1)
  - HEPATITIS [None]
